FAERS Safety Report 16669897 (Version 2)
Quarter: 2019Q3

REPORT INFORMATION
  Report Type: Spontaneous
  Country: US (occurrence: US)
  Receive Date: 20190805
  Receipt Date: 20190807
  Transmission Date: 20191004
  Serious: Yes (Other)
  Sender: FDA-Public Use
  Company Number: US-PFIZER INC-2019333982

PATIENT
  Age: 71 Year
  Sex: Male

DRUGS (2)
  1. LORBRENA [Suspect]
     Active Substance: LORLATINIB
     Indication: METASTASES TO THE MEDIASTINUM
     Dosage: 100 MG, UNK
  2. LORBRENA [Suspect]
     Active Substance: LORLATINIB
     Indication: HYPOXIA

REACTIONS (4)
  - Neoplasm progression [Unknown]
  - Off label use [Unknown]
  - Pancytopenia [Unknown]
  - Product use in unapproved indication [Unknown]
